FAERS Safety Report 25075126 (Version 2)
Quarter: 2025Q1

REPORT INFORMATION
  Report Type: Spontaneous
  Country: US (occurrence: US)
  Receive Date: 20250313
  Receipt Date: 20250328
  Transmission Date: 20250409
  Serious: Yes (Hospitalization)
  Sender: TEVA
  Company Number: US-TEVA-VS-3306298

PATIENT
  Age: 69 Year
  Sex: Female

DRUGS (3)
  1. ATORVASTATIN [Suspect]
     Active Substance: ATORVASTATIN
     Indication: Cardiomyopathy
     Route: 065
  2. COLCHICINE [Suspect]
     Active Substance: COLCHICINE
     Indication: Cardiomyopathy
     Route: 065
  3. CLINDAMYCIN [Suspect]
     Active Substance: CLINDAMYCIN
     Indication: Tooth infection
     Route: 065

REACTIONS (4)
  - Rash [Recovering/Resolving]
  - Myopathy [Recovering/Resolving]
  - Drug hypersensitivity [Recovering/Resolving]
  - Rash erythematous [Recovering/Resolving]
